FAERS Safety Report 5530427-6 (Version None)
Quarter: 2007Q4

REPORT INFORMATION
  Report Type: 
  Country: None (occurrence: None)
  Receive Date: 20071127
  Receipt Date: 20071127
  Transmission Date: 20080405
  Serious: Yes (Hospitalization)
  Sender: FDA-Public Use
  Company Number: None

PATIENT
  Age: 75 Year
  Sex: Female
  Weight: 46.3 kg

DRUGS (6)
  1. COUMADIN [Suspect]
     Indication: ANTICOAGULANT THERAPY
  2. NORTRIPTYLINE HCL [Concomitant]
  3. ZYLOPRIM [Concomitant]
  4. PAMELOR [Concomitant]
  5. DIGOXIN [Concomitant]
  6. EFFEXOR [Concomitant]

REACTIONS (6)
  - FALL [None]
  - HEAD INJURY [None]
  - MENTAL STATUS CHANGES [None]
  - MIOSIS [None]
  - SUBDURAL HAEMATOMA [None]
  - URINARY TRACT INFECTION [None]
